FAERS Safety Report 21191489 (Version 1)
Quarter: 2022Q3

REPORT INFORMATION
  Report Type: Spontaneous
  Country: CN (occurrence: CN)
  Receive Date: 20220809
  Receipt Date: 20220809
  Transmission Date: 20221027
  Serious: Yes (Other)
  Sender: FDA-Public Use
  Company Number: CN-BAYER-2022A110580

PATIENT
  Age: 83 Year
  Sex: Male
  Weight: 60 kg

DRUGS (1)
  1. AVELOX [Suspect]
     Active Substance: MOXIFLOXACIN HYDROCHLORIDE
     Indication: Tuberculosis
     Dosage: 0.4 G, QD
     Route: 041
     Dates: start: 20220626, end: 20220629

REACTIONS (13)
  - Amaurosis [None]
  - Hypersensitivity [Recovering/Resolving]
  - Nausea [None]
  - Hyperhidrosis [None]
  - Respiratory rate increased [None]
  - Blood pressure decreased [None]
  - Oxygen saturation decreased [None]
  - General physical health deterioration [None]
  - Fear [None]
  - Cold sweat [None]
  - Cyanosis [None]
  - Breath sounds abnormal [None]
  - Off label use [None]

NARRATIVE: CASE EVENT DATE: 20220626
